FAERS Safety Report 16461767 (Version 5)
Quarter: 2022Q2

REPORT INFORMATION
  Report Type: Report from Study
  Country: JP (occurrence: JP)
  Receive Date: 20190621
  Receipt Date: 20220621
  Transmission Date: 20220721
  Serious: Yes (Other)
  Sender: FDA-Public Use
  Company Number: JP-VIIV HEALTHCARE LIMITED-JP2016JPN150243

PATIENT

DRUGS (6)
  1. DOLUTEGRAVIR [Suspect]
     Active Substance: DOLUTEGRAVIR
     Indication: HIV infection
     Dosage: 50 MG, 1D
     Route: 048
     Dates: start: 20141130
  2. NORVIR [Suspect]
     Active Substance: RITONAVIR
     Indication: HIV infection
     Dosage: 100 MG, 1D
     Route: 048
     Dates: start: 20090126, end: 20091220
  3. NORVIR [Suspect]
     Active Substance: RITONAVIR
     Dosage: 100 MG, 1D
     Route: 048
     Dates: start: 20130708
  4. DARUNAVIR [Suspect]
     Active Substance: DARUNAVIR
     Indication: HIV infection
     Dosage: 800 MG, QD
     Route: 048
     Dates: start: 20130708
  5. LORAZEPAM [Concomitant]
     Active Substance: LORAZEPAM
     Indication: Depressed mood
     Dosage: 0.5 MG, TID
     Dates: end: 20180410
  6. SULPIRIDE [Concomitant]
     Active Substance: SULPIRIDE
     Indication: Depressed mood
     Dosage: 50 MG, TID
     Dates: end: 20180508

REACTIONS (3)
  - Pneumonia [Recovering/Resolving]
  - Hypercholesterolaemia [Not Recovered/Not Resolved]
  - Hypercholesterolaemia [Recovering/Resolving]

NARRATIVE: CASE EVENT DATE: 20130826
